FAERS Safety Report 8791476 (Version 1)
Quarter: 2012Q4

REPORT INFORMATION
  Report Type: Spontaneous
  Country: US (occurrence: None)
  Receive Date: 20120912
  Receipt Date: 20120912
  Transmission Date: 20130627
  Serious: Yes (Other)
  Sender: FDA-Public Use
  Company Number: GER/GER/12/0025752

PATIENT
  Sex: Female
  Weight: 52 kg

DRUGS (6)
  1. SIMVASTATIN (SIMVASTATIN) [Suspect]
     Indication: DRUG USE FOR UNKNOWN INDICATION
     Route: 048
     Dates: start: 201104, end: 201108
  2. FLUVASTATIN [Suspect]
     Indication: DRUG USE FOR UNKNOWN INDICATION
     Dates: start: 201204
  3. TREDAPTIVE [Suspect]
  4. SORTIS [Suspect]
     Dates: start: 2011, end: 2011
  5. PRAVASTATIN [Suspect]
     Indication: DRUG USE FOR UNKNOWN INDICATION
  6. CHOLESTAGEL [Suspect]
     Dates: start: 201202

REACTIONS (5)
  - Myalgia [None]
  - Rash [None]
  - Angioedema [None]
  - Cognitive disorder [None]
  - Constipation [None]
